FAERS Safety Report 6335145-2 (Version None)
Quarter: 2009Q3

REPORT INFORMATION
  Report Type: 
  Country: None (occurrence: None)
  Receive Date: 20090826
  Receipt Date: 20090824
  Transmission Date: 20100115
  Serious: Yes (Other)
  Sender: FDA-Public Use
  Company Number: 2009SP000291

PATIENT
  Sex: Male
  Weight: 65 kg

DRUGS (6)
  1. TEMODAL [Suspect]
     Indication: ANAPLASTIC ASTROCYTOMA
     Dosage: 75 MG/M2 ; QD; PO
     Route: 048
     Dates: start: 20070216, end: 20070326
  2. DEPAKENE [Concomitant]
  3. GASTER [Concomitant]
  4. NASEA-OD [Concomitant]
  5. PRIMPERAN [Concomitant]
  6. CEFDINIR [Concomitant]

REACTIONS (1)
  - EXTRADURAL ABSCESS [None]
